FAERS Safety Report 26176897 (Version 1)
Quarter: 2025Q4

REPORT INFORMATION
  Report Type: Spontaneous
  Country: CN (occurrence: CN)
  Receive Date: 20251218
  Receipt Date: 20251218
  Transmission Date: 20260118
  Serious: Yes (Hospitalization, Other)
  Sender: BAXTER
  Company Number: None

PATIENT
  Age: 11 Year
  Sex: Male
  Weight: 32.1 kg

DRUGS (5)
  1. CYCLOPHOSPHAMIDE [Suspect]
     Active Substance: CYCLOPHOSPHAMIDE
     Indication: Acute lymphocytic leukaemia
     Dosage: 1.12 G, QD
     Route: 041
     Dates: start: 20250814, end: 20250814
  2. SODIUM CHLORIDE [Suspect]
     Active Substance: SODIUM CHLORIDE
     Dosage: 250 ML, QD (CYCLOPHOSPHAMIDE + 0.9% SODIUM CHLORIDE)
     Route: 041
     Dates: start: 20250814, end: 20250814
  3. SODIUM CHLORIDE [Suspect]
     Active Substance: SODIUM CHLORIDE
     Dosage: 250 ML, BID (CYTARABINE + 0.9% SODIUM CHLOIRDE)
     Route: 041
     Dates: start: 20250814, end: 20250817
  4. MERCAPTOPURINE [Suspect]
     Active Substance: MERCAPTOPURINE
     Indication: Acute lymphocytic leukaemia
     Dosage: 56 MG, QD (QN)
     Route: 048
     Dates: start: 20250814, end: 20250818
  5. CYTARABINE [Suspect]
     Active Substance: CYTARABINE
     Indication: Acute lymphocytic leukaemia
     Dosage: 1.12 G, BID
     Route: 041
     Dates: start: 20250814, end: 20250817

REACTIONS (1)
  - Myelosuppression [Recovering/Resolving]

NARRATIVE: CASE EVENT DATE: 20250824
